FAERS Safety Report 24821043 (Version 2)
Quarter: 2025Q2

REPORT INFORMATION
  Report Type: Spontaneous
  Country: US (occurrence: US)
  Receive Date: 20250108
  Receipt Date: 20250417
  Transmission Date: 20250717
  Serious: No
  Sender: SANOFI AVENTIS
  Company Number: US-SA-2025SA003073

PATIENT
  Age: 29 Year
  Sex: Female

DRUGS (2)
  1. DUPIXENT [Suspect]
     Active Substance: DUPILUMAB
     Indication: Dermatitis atopic
     Dosage: 300 MG, QOW
     Route: 058
     Dates: start: 202409
  2. DUPIXENT [Suspect]
     Active Substance: DUPILUMAB
     Indication: Neurodermatitis

REACTIONS (6)
  - Scratch [Unknown]
  - Scab [Unknown]
  - Skin irritation [Unknown]
  - Pruritus [Unknown]
  - Rash pruritic [Unknown]
  - Rash [Unknown]

NARRATIVE: CASE EVENT DATE: 20240101
